FAERS Safety Report 17143270 (Version 1)
Quarter: 2019Q4

REPORT INFORMATION
  Report Type: Report from Study
  Country: BR (occurrence: BR)
  Receive Date: 20191211
  Receipt Date: 20191211
  Transmission Date: 20200122
  Serious: Yes (Hospitalization)
  Sender: FDA-Public Use
  Company Number: BR-AMERICAN REGENT INC-20190048

PATIENT
  Age: 19 Year
  Sex: Male

DRUGS (9)
  1. MALTOFER FOL TABLETS [Suspect]
     Active Substance: FOLIC ACID\IRON POLYMALTOSE
     Dosage: 1 IN 4 D
     Route: 065
  2. VITERGAN ZINCO PL [Concomitant]
     Indication: VITAMIN SUPPLEMENTATION
     Dosage: 1 IN 1 D
     Route: 065
  3. AMYLOFER (IRON III) [Suspect]
     Active Substance: IRON POLYMALTOSE
     Dosage: 1 IN 4 D
     Route: 065
  4. ENTYVIO [Suspect]
     Active Substance: VEDOLIZUMAB
     Indication: CROHN^S DISEASE
     Dosage: UNKNOWN WEEKS 0,2,6 THEN EVERY 8
     Route: 050
     Dates: start: 20181002
  5. DEXILANT [Suspect]
     Active Substance: DEXLANSOPRAZOLE
     Indication: CROHN^S DISEASE
     Dosage: 1 IN 1 D
     Route: 065
  6. METICORTEN [Concomitant]
     Active Substance: PREDNISONE
     Indication: CROHN^S DISEASE
     Dosage: TWO TABLETS ONCE
     Route: 065
  7. VENOFER [Suspect]
     Active Substance: IRON SUCROSE
     Dosage: 1 IN 4 D
     Route: 065
  8. MALTOFER (IRON POLYMALTOSE) [Suspect]
     Active Substance: IRON POLYMALTOSE
     Dosage: 1 IN 4 D
     Route: 065
  9. CITONEURIN [Concomitant]
     Active Substance: CYANOCOBALAMIN\PYRIDOXINE HYDROCHLORIDE\THIAMINE
     Indication: VITAMIN SUPPLEMENTATION
     Dosage: 1 IN 1 WK
     Route: 065

REACTIONS (1)
  - Enterocolitis [Not Recovered/Not Resolved]

NARRATIVE: CASE EVENT DATE: 20181210
